FAERS Safety Report 25634543 (Version 1)
Quarter: 2025Q3

REPORT INFORMATION
  Report Type: Spontaneous
  Country: US (occurrence: US)
  Receive Date: 20250801
  Receipt Date: 20250801
  Transmission Date: 20251020
  Serious: No
  Sender: Tarsus Pharmaceuticals
  Company Number: US-TARSUS PHARMACEUTICALS-TSP-US-2025-000717

PATIENT

DRUGS (1)
  1. XDEMVY [Suspect]
     Active Substance: LOTILANER
     Indication: Product used for unknown indication
     Dosage: 1 DROP, BID (INSTILL ONE DROP IN EACH EYE TWICE DAILY, 8- 12 HOURS APART FOR SIX WEEKS. WAIT 10-15-
     Route: 047
     Dates: start: 20250601, end: 20250601

REACTIONS (2)
  - Eye irritation [Unknown]
  - Product prescribing issue [Unknown]
